FAERS Safety Report 6402654-7 (Version None)
Quarter: 2009Q4

REPORT INFORMATION
  Report Type: 
  Country: None (occurrence: None)
  Receive Date: 20091009
  Receipt Date: 20090930
  Transmission Date: 20100525
  Serious: Yes (Death)
  Sender: FDA-Public Use
  Company Number: ADR34362009

PATIENT
  Age: 74 Year
  Sex: Female

DRUGS (18)
  1. CIPROFLOXACIN HYDROCHLORIDE [Suspect]
     Indication: PYREXIA
     Dosage: 1.5G
     Dates: start: 20080307, end: 20080312
  2. RITUXIMAB [Concomitant]
  3. ALLOPURINOL [Concomitant]
  4. ASPIRIN [Concomitant]
  5. BISOPROLOL [Concomitant]
  6. CALCIUM CARBONATE [Concomitant]
  7. CYCLOPHOSPHAMIDE [Concomitant]
  8. DOXORUBICIN HCL [Concomitant]
  9. FOLIC ACID [Concomitant]
  10. LANSOPRAZOLE [Concomitant]
  11. METOCLOPRAMIDE [Concomitant]
  12. MORPHINE [Concomitant]
  13. PARACETAMOL [Concomitant]
  14. PREDNISOLONE [Concomitant]
  15. TEMAZEPAM [Concomitant]
  16. VALSARTAN [Concomitant]
  17. VINCRISTINE [Concomitant]
  18. ONDANSETRON [Concomitant]

REACTIONS (4)
  - CONVULSION [None]
  - PYREXIA [None]
  - RENAL FAILURE [None]
  - UNRESPONSIVE TO STIMULI [None]
